FAERS Safety Report 19650964 (Version 2)
Quarter: 2021Q3

REPORT INFORMATION
  Report Type: Report from Study
  Country: None (occurrence: US)
  Receive Date: 20210802
  Receipt Date: 20210811
  Transmission Date: 20211014
  Serious: Yes (Hospitalization)
  Sender: FDA-Public Use
  Company Number: US-ABBVIE-21K-163-4012593-00

PATIENT
  Age: 73 Year
  Sex: Female
  Weight: 66.74 kg

DRUGS (5)
  1. MESALAMINE. [Concomitant]
     Active Substance: MESALAMINE
     Indication: CROHN^S DISEASE
  2. MODERNA COVID?19 VACCINE [Concomitant]
     Active Substance: CX-024414
     Indication: COVID-19 IMMUNISATION
     Dosage: MODERNA
     Route: 030
     Dates: start: 20210512, end: 20210512
  3. HUMIRA [Suspect]
     Active Substance: ADALIMUMAB
     Indication: COLITIS ULCERATIVE
  4. MODERNA COVID?19 VACCINE [Concomitant]
     Active Substance: CX-024414
     Dosage: MODERNA
     Route: 030
     Dates: start: 20210609, end: 20210609
  5. HUMIRA [Suspect]
     Active Substance: ADALIMUMAB
     Indication: CROHN^S DISEASE
     Dosage: CF
     Route: 058
     Dates: start: 201504

REACTIONS (8)
  - Chills [Recovered/Resolved]
  - Fatigue [Recovered/Resolved]
  - Tremor [Recovered/Resolved]
  - Hypersomnia [Recovered/Resolved]
  - Pyrexia [Recovered/Resolved]
  - Stress [Not Recovered/Not Resolved]
  - Anxiety [Not Recovered/Not Resolved]
  - Hepatic enzyme increased [Recovered/Resolved]

NARRATIVE: CASE EVENT DATE: 202103
